FAERS Safety Report 5744974-5 (Version None)
Quarter: 2008Q2

REPORT INFORMATION
  Report Type: 
  Country: None (occurrence: None)
  Receive Date: 20080521
  Receipt Date: 20080515
  Transmission Date: 20081010
  Serious: Yes (Other)
  Sender: FDA-Public Use
  Company Number: CO-BAYER-200814096LA

PATIENT
  Age: 31 Year
  Sex: Female
  Weight: 52 kg

DRUGS (1)
  1. MIRENA [Suspect]
     Indication: CONTRACEPTION
     Route: 015
     Dates: start: 20041010, end: 20070213

REACTIONS (9)
  - AMENORRHOEA [None]
  - BLOOD FOLLICLE STIMULATING HORMONE ABNORMAL [None]
  - CERVICITIS [None]
  - HOT FLUSH [None]
  - HYPOMENORRHOEA [None]
  - OESTRADIOL ABNORMAL [None]
  - OVARIAN ATROPHY [None]
  - OVARIAN FAILURE [None]
  - ULTRASOUND OVARY ABNORMAL [None]
